FAERS Safety Report 18879999 (Version 2)
Quarter: 2022Q4

REPORT INFORMATION
  Report Type: Report from Study
  Country: US (occurrence: US)
  Receive Date: 20210211
  Receipt Date: 20221025
  Transmission Date: 20230112
  Serious: Yes (Other)
  Sender: FDA-Public Use
  Company Number: US-PFIZER INC-2020513664

PATIENT
  Age: 49 Year
  Sex: Female

DRUGS (8)
  1. IBRANCE [Suspect]
     Active Substance: PALBOCICLIB
     Indication: Breast cancer
     Dosage: 75 MG, DAILY FOR 21 DAYS AND OFF 7 DAYS
     Route: 048
     Dates: start: 20200814
  2. IBRANCE [Suspect]
     Active Substance: PALBOCICLIB
     Dosage: 75 MG, DAILY FOR 21 DAYS AND OFF 7 DAYS
     Route: 048
     Dates: start: 20200817, end: 202112
  3. IBRANCE [Suspect]
     Active Substance: PALBOCICLIB
     Dosage: 75 MG, DAILY FOR 21/28 DAY CYCLE
     Route: 048
     Dates: start: 20221006
  4. LETROZOLE [Concomitant]
     Active Substance: LETROZOLE
     Dosage: UNK, DAILY
  5. TURKEY TAIL MUSHROOM [Concomitant]
     Indication: White blood cell count abnormal
     Dosage: UNK
  6. TURKEY TAIL MUSHROOM [Concomitant]
     Indication: Immune enhancement therapy
  7. COLLAGEN [Concomitant]
     Active Substance: COLLAGEN
     Indication: Bone disorder
     Dosage: UNK
  8. CANNABIS SATIVA SUBSP. INDICA TOP [Concomitant]
     Active Substance: CANNABIS SATIVA SUBSP. INDICA TOP
     Indication: Decreased appetite
     Dosage: UNK

REACTIONS (8)
  - Myelosuppression [Recovered/Resolved]
  - Full blood count abnormal [Unknown]
  - Hot flush [Unknown]
  - Breast pain [Unknown]
  - Lymphadenopathy [Unknown]
  - Hyperhidrosis [Unknown]
  - Dyspnoea [Unknown]
  - Contusion [Unknown]

NARRATIVE: CASE EVENT DATE: 20201217
